FAERS Safety Report 16116221 (Version 1)
Quarter: 2019Q1

REPORT INFORMATION
  Report Type: Report from Study
  Country: DE (occurrence: DE)
  Receive Date: 20190326
  Receipt Date: 20190326
  Transmission Date: 20190418
  Serious: Yes (Hospitalization)
  Sender: FDA-Public Use
  Company Number: DE-ROCHE-2286350

PATIENT
  Sex: Male
  Weight: 71 kg

DRUGS (5)
  1. AZATHIOPRIN [Concomitant]
     Active Substance: AZATHIOPRINE
  2. MMF [Concomitant]
     Active Substance: MYCOPHENOLATE MOFETIL
  3. RITUXIMAB. [Suspect]
     Active Substance: RITUXIMAB
     Indication: ACUTE LYMPHOCYTIC LEUKAEMIA
     Route: 058
     Dates: start: 20190205
  4. PROGRAF [Concomitant]
     Active Substance: TACROLIMUS\TACROLIMUS ANHYDROUS
  5. CYCLOSPORIN A [Concomitant]
     Active Substance: CYCLOSPORINE

REACTIONS (1)
  - Constipation [Recovered/Resolved]

NARRATIVE: CASE EVENT DATE: 20190304
